FAERS Safety Report 7219576-4 (Version None)
Quarter: 2011Q1

REPORT INFORMATION
  Report Type: 
  Country: None (occurrence: None)
  Receive Date: 20110111
  Receipt Date: 20110105
  Transmission Date: 20110831
  Serious: Yes (Other)
  Sender: FDA-Public Use
  Company Number: US-ASTRAZENECA-2011SE00870

PATIENT
  Age: 20 Year
  Sex: Male

DRUGS (1)
  1. SEROQUEL [Suspect]
     Indication: DRUG ABUSE
     Route: 048

REACTIONS (2)
  - OVERDOSE [None]
  - APNOEA [None]
